FAERS Safety Report 5429141-7 (Version None)
Quarter: 2007Q3

REPORT INFORMATION
  Report Type: 
  Country: None (occurrence: None)
  Receive Date: 20070829
  Receipt Date: 20070820
  Transmission Date: 20080115
  Serious: Yes (Disabling)
  Sender: FDA-Public Use
  Company Number: JP-ASTRAZENECA-2007AP05302

PATIENT
  Age: 80 Year
  Sex: Female

DRUGS (1)
  1. XYLOCAINE TOPICAL FILM [Suspect]
     Dates: end: 20070807

REACTIONS (1)
  - PHARYNGEAL STENOSIS [None]
